FAERS Safety Report 7429744-4 (Version None)
Quarter: 2011Q2

REPORT INFORMATION
  Report Type: 
  Country: None (occurrence: None)
  Receive Date: 20110421
  Receipt Date: 20110412
  Transmission Date: 20111010
  Serious: Yes (Hospitalization, Other)
  Sender: FDA-Public Use
  Company Number: US-JNJFOC-20110405728

PATIENT
  Sex: Female

DRUGS (3)
  1. DURAGESIC [Suspect]
     Indication: PRODUCT USED FOR UNKNOWN INDICATION
     Route: 062
  2. FENTANYL-100 [Suspect]
     Indication: BONE PAIN
     Route: 062
  3. DURAGESIC [Suspect]
     Indication: BONE PAIN
     Route: 062

REACTIONS (7)
  - HEART RATE IRREGULAR [None]
  - INTERVERTEBRAL DISC DISORDER [None]
  - NERVOUSNESS [None]
  - PALPITATIONS [None]
  - MUSCLE SPASMS [None]
  - ARTHRALGIA [None]
  - BODY TEMPERATURE DECREASED [None]
